FAERS Safety Report 10027312 (Version 1)
Quarter: 2014Q1

REPORT INFORMATION
  Report Type: Spontaneous
  Country: JP (occurrence: JP)
  Receive Date: 20140321
  Receipt Date: 20140321
  Transmission Date: 20141002
  Serious: Yes (Other)
  Sender: FDA-Public Use
  Company Number: JP-ASTELLAS-2014JP002514

PATIENT
  Age: 75 Year
  Sex: Female

DRUGS (4)
  1. PROGRAF [Suspect]
     Indication: RHEUMATOID ARTHRITIS
     Dosage: 1 MG, UNKNOWN/D
     Route: 048
  2. PREDONINE                          /00016201/ [Concomitant]
     Route: 065
  3. METHOTREXATE [Concomitant]
     Route: 065
  4. MEDICINE FOR OSTEOPOROSIS [Concomitant]
     Indication: OSTEOPOROSIS
     Route: 065

REACTIONS (2)
  - Intentional drug misuse [Unknown]
  - Huntington^s disease [Unknown]
